FAERS Safety Report 7214586-5 (Version None)
Quarter: 2011Q1

REPORT INFORMATION
  Report Type: 
  Country: None (occurrence: None)
  Receive Date: 20110107
  Receipt Date: 20101228
  Transmission Date: 20110831
  Serious: Yes (Other)
  Sender: FDA-Public Use
  Company Number: US-ABBOTT-10P-163-0694284-00

PATIENT
  Sex: Female
  Weight: 65.83 kg

DRUGS (6)
  1. PREDNISONE [Concomitant]
     Indication: RHEUMATOID ARTHRITIS
  2. PERCOCET [Concomitant]
     Indication: PAIN
  3. CELEBREX [Concomitant]
     Indication: RHEUMATOID ARTHRITIS
  4. HUMIRA [Suspect]
     Indication: RHEUMATOID ARTHRITIS
     Dates: start: 20101027, end: 20101227
  5. AMITRIPTYLINE [Concomitant]
     Indication: RHEUMATOID ARTHRITIS
  6. BACLOFEN [Concomitant]
     Indication: RHEUMATOID ARTHRITIS

REACTIONS (7)
  - SKIN ULCER [None]
  - SKIN ULCER HAEMORRHAGE [None]
  - PLEURISY [None]
  - FATIGUE [None]
  - CHEST DISCOMFORT [None]
  - BLISTER [None]
  - CHEST PAIN [None]
